FAERS Safety Report 11415441 (Version 1)
Quarter: 2015Q3

REPORT INFORMATION
  Report Type: Spontaneous
  Country: US (occurrence: None)
  Receive Date: 20150824
  Receipt Date: 20150824
  Transmission Date: 20151125
  Serious: Yes (Other)
  Sender: FDA-Public Use
  Company Number: None

PATIENT
  Sex: Female

DRUGS (1)
  1. CAPECITABINE 500MG TEVA PHARMACEUTICALS [Suspect]
     Active Substance: CAPECITABINE
     Indication: DRUG THERAPY
     Dosage: 2 TABS BID FOR 14 DAYS THEN 7 DAYS OFF
     Route: 048
     Dates: start: 20150507, end: 20150821

REACTIONS (1)
  - Malignant neoplasm progression [None]
